FAERS Safety Report 16749892 (Version 1)
Quarter: 2019Q3

REPORT INFORMATION
  Report Type: Report from Study
  Country: US (occurrence: US)
  Receive Date: 20190828
  Receipt Date: 20190828
  Transmission Date: 20191005
  Serious: Yes (Hospitalization, Other)
  Sender: FDA-Public Use
  Company Number: US-ROCHE-2287527

PATIENT
  Age: 65 Year
  Sex: Male

DRUGS (12)
  1. BENICAR [Concomitant]
     Active Substance: OLMESARTAN MEDOXOMIL
  2. VITAMIN A [RETINOL] [Concomitant]
     Active Substance: RETINOL
  3. ESOMEPRAZOLE. [Concomitant]
     Active Substance: ESOMEPRAZOLE MAGNESIUM
  4. AZOPT [Concomitant]
     Active Substance: BRINZOLAMIDE
  5. CRESTOR [Concomitant]
     Active Substance: ROSUVASTATIN CALCIUM
  6. MEDROL [Concomitant]
     Active Substance: METHYLPREDNISOLONE
  7. LATANOPROST. [Concomitant]
     Active Substance: LATANOPROST
  8. BRIMONIDINE [Concomitant]
     Active Substance: BRIMONIDINE TARTRATE
  9. METOPROLOL. [Concomitant]
     Active Substance: METOPROLOL
  10. VITAMIN D3 [Concomitant]
     Active Substance: CHOLECALCIFEROL
  11. ACTEMRA [Suspect]
     Active Substance: TOCILIZUMAB
     Indication: ARTERITIS
     Route: 058
     Dates: start: 20180516
  12. XARELTO [Concomitant]
     Active Substance: RIVAROXABAN

REACTIONS (3)
  - Pulmonary embolism [Unknown]
  - Pneumonia [Recovering/Resolving]
  - Leukopenia [Unknown]

NARRATIVE: CASE EVENT DATE: 201811
